FAERS Safety Report 4454013-4 (Version None)
Quarter: 2004Q3

REPORT INFORMATION
  Report Type: 
  Country: None (occurrence: None)
  Receive Date: 20040826
  Receipt Date: 20040630
  Transmission Date: 20050211
  Serious: No
  Sender: FDA-Public Use
  Company Number: WAES 0306USA01639

PATIENT
  Age: 84 Year
  Sex: Female

DRUGS (9)
  1. ZETIA [Suspect]
     Indication: BLOOD CHOLESTEROL INCREASED
     Dosage: PO
     Route: 048
     Dates: start: 20030609, end: 20030101
  2. CARTIA (DILTIAZEM HYDROCHLORIDE) [Concomitant]
  3. LANOXIN [Concomitant]
  4. PRINIVIL [Concomitant]
  5. XALATAN [Concomitant]
  6. METOPROLOL [Concomitant]
  7. WARFARIN SODIUM [Concomitant]
  8. ZETIA [Suspect]
     Indication: BLOOD CHOLESTEROL INCREASED
     Dosage: 10 MG/DAILY/PO
     Route: 048
     Dates: start: 20031026, end: 20040315
  9. ZETIA [Suspect]
     Indication: BLOOD CHOLESTEROL INCREASED
     Dosage: 10 MG/4XWK/PO
     Route: 048
     Dates: start: 20040316

REACTIONS (6)
  - ADVERSE EVENT [None]
  - FLATULENCE [None]
  - MEDICATION ERROR [None]
  - MYALGIA [None]
  - RHINORRHOEA [None]
  - VISION BLURRED [None]
